FAERS Safety Report 8991141 (Version 1)
Quarter: 2012Q4

REPORT INFORMATION
  Report Type: Spontaneous
  Country: US (occurrence: None)
  Receive Date: 20121227
  Receipt Date: 20121227
  Transmission Date: 20130627
  Serious: Yes (Other)
  Sender: FDA-Public Use
  Company Number: None

PATIENT
  Sex: Female

DRUGS (1)
  1. XELODA [Suspect]
     Indication: MALIGNANT BREAST NEOPLASM
     Dosage: 2500 DAILY PO
     Route: 048
     Dates: start: 20121005, end: 20121219

REACTIONS (1)
  - Adverse event [None]
